FAERS Safety Report 14898487 (Version 9)
Quarter: 2020Q1

REPORT INFORMATION
  Report Type: Report from Study
  Country: BR (occurrence: BR)
  Receive Date: 20180515
  Receipt Date: 20200121
  Transmission Date: 20200409
  Serious: Yes (Death, Life-Threatening, Hospitalization, Other)
  Sender: FDA-Public Use
  Company Number: PHHY2018BR005957

PATIENT
  Age: 73 Year
  Sex: Male
  Weight: 65 kg

DRUGS (11)
  1. SANDOSTATIN LAR DEPOT [Suspect]
     Active Substance: OCTREOTIDE ACETATE
     Dosage: UNK
     Route: 065
     Dates: start: 2015
  2. AMLODIPINE [Concomitant]
     Active Substance: AMLODIPINE BESYLATE
     Indication: HYPERTENSION
     Dosage: 1 DF, QD
     Route: 048
  3. SANDOSTATIN LAR DEPOT [Suspect]
     Active Substance: OCTREOTIDE ACETATE
     Indication: ACROMEGALY
     Dosage: 30 MG, QMO
     Route: 030
     Dates: start: 2007
  4. ENALAPRIL [Concomitant]
     Active Substance: ENALAPRIL
     Indication: HYPERTENSION
     Dosage: 2 DF A DAY
     Route: 048
  5. SANDOSTATIN LAR DEPOT [Suspect]
     Active Substance: OCTREOTIDE ACETATE
     Dosage: 30 MG, QMO
     Route: 030
     Dates: end: 201910
  6. SANDOSTATIN LAR DEPOT [Suspect]
     Active Substance: OCTREOTIDE ACETATE
     Dosage: 20 MG, QMO
     Route: 030
     Dates: start: 2012
  7. SANDOSTATIN LAR DEPOT [Suspect]
     Active Substance: OCTREOTIDE ACETATE
     Dosage: QMO (1 AMPOULE)
     Route: 030
     Dates: start: 2011
  8. SANDOSTATIN LAR DEPOT [Suspect]
     Active Substance: OCTREOTIDE ACETATE
     Dosage: 20 MG, QMO
     Route: 030
     Dates: start: 20190313
  9. SANDOSTATIN LAR DEPOT [Suspect]
     Active Substance: OCTREOTIDE ACETATE
     Dosage: 30 MG, QMO
     Route: 030
     Dates: start: 2011
  10. SANDOSTATIN LAR DEPOT [Suspect]
     Active Substance: OCTREOTIDE ACETATE
     Dosage: 20 MG, UNK
     Route: 065
  11. HYDROCHLOROTHIAZIDE. [Concomitant]
     Active Substance: HYDROCHLOROTHIAZIDE
     Indication: HYPERTENSION
     Dosage: 1 DF, QD
     Route: 048

REACTIONS (28)
  - Abdominal hernia [Fatal]
  - Platelet count decreased [Recovered/Resolved]
  - Anaemia [Unknown]
  - Gastrointestinal disorder [Unknown]
  - Abdominal pain [Unknown]
  - Gastrointestinal necrosis [Unknown]
  - Endocarditis [Unknown]
  - Erythema [Unknown]
  - Erysipelas [Recovered/Resolved]
  - Flatulence [Unknown]
  - Sepsis [Fatal]
  - Hepatic cirrhosis [Not Recovered/Not Resolved]
  - General physical health deterioration [Unknown]
  - Peripheral swelling [Unknown]
  - Rectal cancer [Recovering/Resolving]
  - Gait inability [Recovered/Resolved]
  - Haemoglobin decreased [Recovered/Resolved]
  - Pulmonary mass [Recovering/Resolving]
  - Hepatic mass [Recovering/Resolving]
  - Weight decreased [Unknown]
  - Gastrointestinal carcinoma [Recovering/Resolving]
  - Rectal cancer recurrent [Unknown]
  - Hepatitis C [Recovered/Resolved]
  - Bowel movement irregularity [Unknown]
  - Neoplasm recurrence [Unknown]
  - Thrombosis [Not Recovered/Not Resolved]
  - Neoplasm malignant [Unknown]
  - Asthenia [Unknown]

NARRATIVE: CASE EVENT DATE: 2007
